FAERS Safety Report 5264639-6 (Version None)
Quarter: 2007Q1

REPORT INFORMATION
  Report Type: 
  Country: None (occurrence: None)
  Receive Date: 20070314
  Receipt Date: 20070305
  Transmission Date: 20070707
  Serious: Yes (Other)
  Sender: FDA-Public Use
  Company Number: 2007PK00620

PATIENT
  Age: 17471 Day
  Sex: Female
  Weight: 69 kg

DRUGS (3)
  1. NOLVADEX [Suspect]
     Indication: BREAST CANCER
     Route: 048
     Dates: start: 20040217
  2. ZOLADEX [Concomitant]
     Indication: BREAST CANCER FEMALE
     Route: 058
     Dates: start: 20040217
  3. LEVOTHYROXINE SODIUM [Concomitant]
     Indication: THYROXINE THERAPY
     Route: 048

REACTIONS (1)
  - CERVICAL POLYP [None]
